FAERS Safety Report 6790894-7 (Version None)
Quarter: 2010Q2

REPORT INFORMATION
  Report Type: 
  Country: None (occurrence: None)
  Receive Date: 20100624
  Receipt Date: 20100615
  Transmission Date: 20101027
  Serious: Yes (Hospitalization)
  Sender: FDA-Public Use
  Company Number: B0660645A

PATIENT
  Sex: Female

DRUGS (7)
  1. ARIXTRA [Suspect]
     Dosage: 5MG PER DAY
     Route: 058
     Dates: end: 20100404
  2. DEROXAT [Concomitant]
  3. MOTILIUM [Concomitant]
  4. DICETEL [Concomitant]
  5. TERCIAN [Concomitant]
  6. DAFLON [Concomitant]
  7. STRUCTUM [Concomitant]

REACTIONS (3)
  - HAEMATOMA [None]
  - HAEMOGLOBIN DECREASED [None]
  - RENAL FAILURE [None]
